FAERS Safety Report 8181659-2 (Version None)
Quarter: 2012Q1

REPORT INFORMATION
  Report Type: 
  Country: None (occurrence: None)
  Receive Date: 20120301
  Receipt Date: 20120301
  Transmission Date: 20120608
  Serious: Yes (Other)
  Sender: FDA-Public Use
  Company Number: None

PATIENT
  Age: 76 Year
  Sex: Female
  Weight: 54.4316 kg

DRUGS (2)
  1. DEXILANT [Suspect]
     Indication: GASTROOESOPHAGEAL REFLUX DISEASE
     Dosage: 60 MG 1 CAPSULE DAILY WATER BY MOUTH
     Route: 048
     Dates: start: 20111216
  2. DEXILANT [Suspect]
     Dosage: 60 MG 1 CAPSULE DAILY WATER BY MOUTH
     Route: 048
     Dates: start: 20120101

REACTIONS (1)
  - DIARRHOEA [None]
